FAERS Safety Report 6332424-X (Version None)
Quarter: 2009Q3

REPORT INFORMATION
  Report Type: 
  Country: None (occurrence: None)
  Receive Date: 20090828
  Receipt Date: 20070521
  Transmission Date: 20100115
  Serious: Yes (Hospitalization, Other)
  Sender: FDA-Public Use
  Company Number: US-ASTRAZENECA-2006UW24140

PATIENT
  Age: 13912 Day
  Sex: Female
  Weight: 106.1 kg

DRUGS (22)
  1. SEROQUEL [Suspect]
     Indication: DEPRESSION
     Dosage: 100-200 MG
     Route: 048
     Dates: start: 20010101
  2. SEROQUEL [Suspect]
     Route: 048
  3. ABILIFY [Concomitant]
     Indication: PSYCHOTIC DISORDER
     Dates: start: 20030101, end: 20040101
  4. ABILIFY [Concomitant]
     Dosage: 7.5-15 MG
     Dates: start: 20050103
  5. RISPERDAL [Concomitant]
  6. ZYPREXA [Concomitant]
     Dates: start: 20020101, end: 20030101
  7. CELEXA [Concomitant]
  8. MARIJUANA [Concomitant]
  9. LEXAPRO [Concomitant]
     Dosage: 15-20 MG
     Dates: start: 20050103
  10. GABITRIL [Concomitant]
     Dosage: 4-8 MG
     Dates: start: 20050103
  11. TRAZODONE HCL [Concomitant]
     Indication: SLEEP DISORDER
     Dosage: 50 MG 1 TO 2 TABLETS AT NIGHT
     Dates: start: 20051011
  12. PRILOSEC [Concomitant]
     Dates: start: 19990101
  13. AVALIDE [Concomitant]
     Dosage: 300/12.5 MG
     Dates: start: 19990101
  14. MACRODANTIN [Concomitant]
     Dates: start: 19990101
  15. THEOPHYLLINE [Concomitant]
     Dosage: 1 TABLE SPOON THREE TIMES A DAY
     Dates: start: 19990101
  16. AMARYL [Concomitant]
     Dates: start: 19990101
  17. FLEXERIL [Concomitant]
     Indication: MYALGIA
     Dates: start: 19990101
  18. ALBUTEROL PUFF [Concomitant]
     Dates: start: 19990101
  19. CLONAZEPAM [Concomitant]
     Indication: ANXIETY
     Dates: start: 20060818
  20. ZOLOFT [Concomitant]
     Dates: start: 20010101
  21. METFORMIN HCL [Concomitant]
     Dates: start: 20060818
  22. GLYBURIDE [Concomitant]
     Dates: start: 20060818

REACTIONS (13)
  - DIABETES MELLITUS [None]
  - DIABETES MELLITUS INADEQUATE CONTROL [None]
  - DIABETIC NEPHROPATHY [None]
  - DIABETIC NEUROPATHY [None]
  - HYPERGLYCAEMIA [None]
  - MALAISE [None]
  - NEUROPATHY PERIPHERAL [None]
  - PANCREATIC PSEUDOCYST [None]
  - PANCREATITIS [None]
  - PANCREATITIS ACUTE [None]
  - RENAL FAILURE CHRONIC [None]
  - TYPE 1 DIABETES MELLITUS [None]
  - TYPE 2 DIABETES MELLITUS [None]
